FAERS Safety Report 10601086 (Version 3)
Quarter: 2014Q4

REPORT INFORMATION
  Report Type: Spontaneous
  Country: DE (occurrence: DE)
  Receive Date: 20141124
  Receipt Date: 20141226
  Transmission Date: 20150529
  Serious: Yes (Disabling)
  Sender: FDA-Public Use
  Company Number: DE-SA-2014SA157295

PATIENT
  Age: 53 Year
  Sex: Male
  Weight: 78 kg

DRUGS (3)
  1. BISOPROLOL [Concomitant]
     Active Substance: BISOPROLOL
  2. HUMALOG [Concomitant]
     Active Substance: INSULIN LISPRO
  3. LANTUS [Suspect]
     Active Substance: INSULIN GLARGINE
     Indication: TYPE 1 DIABETES MELLITUS
     Route: 058
     Dates: start: 201312

REACTIONS (2)
  - Hypoaesthesia [Recovered/Resolved]
  - Hemiparesis [Recovered/Resolved]

NARRATIVE: CASE EVENT DATE: 201410
